FAERS Safety Report 7658898-X (Version None)
Quarter: 2011Q3

REPORT INFORMATION
  Report Type: 
  Country: None (occurrence: None)
  Receive Date: 20110802
  Receipt Date: 20110722
  Transmission Date: 20111222
  Serious: Yes (Other)
  Sender: FDA-Public Use
  Company Number: US-2011-10357

PATIENT
  Age: 34 Year
  Sex: Male

DRUGS (4)
  1. BUSULFAN [Suspect]
     Indication: STEM CELL TRANSPLANT
     Dosage: INTRAVENOUS
     Route: 042
  2. FLUDARABINE PHOSPHATE [Concomitant]
  3. TACROLIMUS [Concomitant]
  4. METHOTREXATE [Concomitant]

REACTIONS (23)
  - NAIL DYSTROPHY [None]
  - OBLITERATIVE BRONCHIOLITIS [None]
  - PLEURAL EFFUSION [None]
  - PERICARDIAL FIBROSIS [None]
  - PLEUROPERICARDITIS [None]
  - RESTRICTIVE PULMONARY DISEASE [None]
  - PERICARDIAL EFFUSION [None]
  - LUNG CONSOLIDATION [None]
  - EOSINOPHILIA [None]
  - EYE DISORDER [None]
  - ICHTHYOSIS [None]
  - OBSTRUCTIVE AIRWAYS DISORDER [None]
  - KERATITIS [None]
  - ATELECTASIS [None]
  - CARDIAC TAMPONADE [None]
  - CARDIOMEGALY [None]
  - PRURITUS [None]
  - RESPIRATORY SYNCYTIAL VIRUS INFECTION [None]
  - CHRONIC GRAFT VERSUS HOST DISEASE [None]
  - MOUTH ULCERATION [None]
  - POIKILODERMA [None]
  - LICHEN PLANUS [None]
  - RUBULAVIRUS TEST POSITIVE [None]
